FAERS Safety Report 5975667-7 (Version None)
Quarter: 2008Q4

REPORT INFORMATION
  Report Type: 
  Country: None (occurrence: None)
  Receive Date: 20081202
  Receipt Date: 20081125
  Transmission Date: 20090506
  Serious: Yes (Death)
  Sender: FDA-Public Use
  Company Number: PHHY2008DE29827

PATIENT
  Sex: Female

DRUGS (2)
  1. RASILEZ [Suspect]
  2. BLOPRESS [Concomitant]

REACTIONS (1)
  - PNEUMONIA [None]
